FAERS Safety Report 25989604 (Version 1)
Quarter: 2025Q4

REPORT INFORMATION
  Report Type: Spontaneous
  Country: US (occurrence: None)
  Receive Date: 20251031
  Receipt Date: 20251031
  Transmission Date: 20260117
  Serious: Yes (Disabling)
  Sender: FDA-CTU
  Company Number: None

PATIENT
  Age: 43 Year
  Sex: Male
  Weight: 74.25 kg

DRUGS (4)
  1. XDEMVY [Suspect]
     Active Substance: LOTILANER
     Indication: Drug therapy
     Dosage: OTHER QUANTITY : 1 DROP(S);?FREQUENCY : EVERY 12 HOURS;?
     Route: 047
     Dates: start: 20250616, end: 20250703
  2. Gummy multivitamin [Concomitant]
  3. VITAMIN D [Concomitant]
     Active Substance: VITAMIN D NOS
  4. PROBIOTICS NOS [Concomitant]
     Active Substance: PROBIOTICS NOS

REACTIONS (16)
  - Instillation site irritation [None]
  - Eye irritation [None]
  - Ocular hyperaemia [None]
  - Nasal discomfort [None]
  - Sinus disorder [None]
  - Night sweats [None]
  - Drug ineffective [None]
  - Headache [None]
  - Burning sensation [None]
  - Paraesthesia [None]
  - Formication [None]
  - Brain fog [None]
  - Vertigo [None]
  - Mental impairment [None]
  - Impaired work ability [None]
  - Infection [None]

NARRATIVE: CASE EVENT DATE: 20250703
